FAERS Safety Report 5417756-1 (Version None)
Quarter: 2007Q3

REPORT INFORMATION
  Report Type: 
  Country: None (occurrence: None)
  Receive Date: 20070817
  Receipt Date: 20070813
  Transmission Date: 20080115
  Serious: Yes (Death, Other)
  Sender: FDA-Public Use
  Company Number: PHFR2007IE01963

PATIENT
  Age: 39 Year
  Sex: Male

DRUGS (8)
  1. CLOZARIL [Suspect]
     Indication: SCHIZOPHRENIA
     Route: 048
     Dates: start: 20000609, end: 20030225
  2. CLOZARIL [Suspect]
     Route: 048
     Dates: start: 20050324, end: 20060704
  3. CLOZARIL [Suspect]
     Route: 048
     Dates: start: 20060801
  4. LITHIUM CARBONATE [Concomitant]
     Indication: AFFECTIVE DISORDER
     Dosage: 800MG/DAY
     Route: 065
  5. ZOTON [Concomitant]
     Indication: GASTROINTESTINAL DISORDER
     Dosage: 15MG/DAY
     Route: 065
  6. ISTIN [Concomitant]
     Indication: BLOOD PRESSURE INCREASED
     Dosage: 10MG/DAY
     Route: 065
  7. LIPITOR [Concomitant]
     Indication: BLOOD PRESSURE INCREASED
     Dosage: 40MG/DAY
     Route: 065
  8. LORAZEPAM [Concomitant]
     Dosage: 4 MG, TID
     Route: 065

REACTIONS (3)
  - CORONARY ARTERY THROMBOSIS [None]
  - OVERWEIGHT [None]
  - SYNCOPE [None]
